FAERS Safety Report 21614911 (Version 1)
Quarter: 2022Q4

REPORT INFORMATION
  Report Type: Spontaneous
  Country: FR (occurrence: FR)
  Receive Date: 20221118
  Receipt Date: 20221118
  Transmission Date: 20230112
  Serious: Yes (Hospitalization, Other)
  Sender: FDA-Public Use
  Company Number: None

PATIENT
  Age: 52 Year
  Sex: Male

DRUGS (7)
  1. PEMBROLIZUMAB [Suspect]
     Active Substance: PEMBROLIZUMAB
     Indication: Renal cancer metastatic
     Dosage: 200 MILLIGRAM, 1 CYCLICAL
     Route: 042
     Dates: start: 202104
  2. AXITINIB [Suspect]
     Active Substance: AXITINIB
     Indication: Renal cancer metastatic
     Dosage: 10 MILLIGRAM, QD
     Route: 048
     Dates: start: 202104, end: 20220908
  3. AXITINIB [Suspect]
     Active Substance: AXITINIB
     Dosage: 6 MILLIGRAM, QD
     Route: 048
     Dates: start: 20220930
  4. IMODIUM [Concomitant]
     Active Substance: LOPERAMIDE HYDROCHLORIDE
     Dosage: UNK
     Route: 048
     Dates: start: 202205
  5. SMECTA [Concomitant]
     Active Substance: MONTMORILLONITE
     Dosage: UNK
     Route: 048
     Dates: start: 202205
  6. CREON [Concomitant]
     Active Substance: PANCRELIPASE AMYLASE\PANCRELIPASE LIPASE\PANCRELIPASE PROTEASE
     Dosage: 1 TO 2 CAPSULES X 3/DAY
     Route: 048
     Dates: start: 202205
  7. LEVOTHYROXINE [Concomitant]
     Active Substance: LEVOTHYROXINE
     Dosage: 125 MICROGRAM, QD
     Route: 048
     Dates: start: 202205

REACTIONS (2)
  - Carotid arteriosclerosis [Not Recovered/Not Resolved]
  - Transient ischaemic attack [Recovering/Resolving]

NARRATIVE: CASE EVENT DATE: 20220927
